FAERS Safety Report 6112963-7 (Version None)
Quarter: 2009Q1

REPORT INFORMATION
  Report Type: 
  Country: None (occurrence: None)
  Receive Date: 20090312
  Receipt Date: 20090225
  Transmission Date: 20090719
  Serious: Yes (Other)
  Sender: FDA-Public Use
  Company Number: NL-TEVA-187338ISR

PATIENT
  Age: 46 Year
  Sex: Male

DRUGS (2)
  1. BUDESONIDE [Suspect]
     Indication: CROHN'S DISEASE
  2. AZATHIOPRINE [Suspect]

REACTIONS (1)
  - NOCARDIOSIS [None]
